FAERS Safety Report 10219935 (Version 1)
Quarter: 2014Q2

REPORT INFORMATION
  Report Type: Spontaneous
  Country: US (occurrence: US)
  Receive Date: 20140605
  Receipt Date: 20140605
  Transmission Date: 20141212
  Serious: Yes (Other)
  Sender: FDA-Public Use
  Company Number: US-ELI_LILLY_AND_COMPANY-US201405009876

PATIENT
  Age: 71 Year
  Sex: Female

DRUGS (2)
  1. HUMALOG LISPRO [Suspect]
     Indication: TYPE 1 DIABETES MELLITUS
     Dosage: UNK, PRN
     Route: 065
     Dates: start: 2002
  2. HUMULIN NPH [Suspect]
     Indication: TYPE 1 DIABETES MELLITUS
     Dosage: UNK
     Route: 065

REACTIONS (7)
  - Retinal detachment [Unknown]
  - Cataract [Unknown]
  - Visual acuity reduced [Not Recovered/Not Resolved]
  - Vitreous floaters [Unknown]
  - Anaemia [Unknown]
  - Eye swelling [Unknown]
  - Glycosylated haemoglobin increased [Unknown]
